FAERS Safety Report 25885611 (Version 2)
Quarter: 2025Q4

REPORT INFORMATION
  Report Type: Spontaneous
  Country: US (occurrence: US)
  Receive Date: 20251006
  Receipt Date: 20251007
  Transmission Date: 20260117
  Serious: Yes (Death)
  Sender: BIOCRYST PHARMACEUTICALS
  Company Number: US-BIOCRYST PHARMACEUTICALS, INC.-2025BCR01264

PATIENT

DRUGS (1)
  1. ORLADEYO [Suspect]
     Active Substance: BEROTRALSTAT HYDROCHLORIDE
     Indication: Hereditary angioedema
     Dosage: 150 MG, QD
     Route: 048
     Dates: start: 202207

REACTIONS (1)
  - Cerebrovascular accident [Fatal]
